FAERS Safety Report 4831628-2 (Version None)
Quarter: 2005Q4

REPORT INFORMATION
  Report Type: 
  Country: None (occurrence: None)
  Receive Date: 20051116
  Receipt Date: 20051103
  Transmission Date: 20060501
  Serious: Yes (Life-Threatening, Other)
  Sender: FDA-Public Use
  Company Number: 2005144114

PATIENT
  Age: 32 Year
  Sex: Female
  Weight: 79.3795 kg

DRUGS (9)
  1. DEPO-PROVERA [Suspect]
     Indication: CONTRACEPTION
     Dosage: SEE IMAGE
     Route: 030
     Dates: start: 20001201, end: 20001201
  2. DEPO-PROVERA [Suspect]
     Indication: MENORRHAGIA
     Dosage: SEE IMAGE
     Route: 030
     Dates: start: 20001201, end: 20001201
  3. DEPO-PROVERA [Suspect]
     Indication: CONTRACEPTION
     Dosage: SEE IMAGE
     Route: 030
     Dates: start: 20050816, end: 20050816
  4. DEPO-PROVERA [Suspect]
     Indication: MENORRHAGIA
     Dosage: SEE IMAGE
     Route: 030
     Dates: start: 20050816, end: 20050816
  5. LOTENSIN [Concomitant]
  6. LANOXIN [Concomitant]
  7. TOPRAL (SULTOPRIDE) [Concomitant]
  8. DIOVANE (VALSARTAN) [Concomitant]
  9. TRICOR [Concomitant]

REACTIONS (3)
  - BREAST CANCER FEMALE [None]
  - CARDIAC DISORDER [None]
  - THYROID DISORDER [None]
